FAERS Safety Report 8545405-2 (Version None)
Quarter: 2012Q3

REPORT INFORMATION
  Report Type: 
  Country: None (occurrence: None)
  Receive Date: 20120727
  Receipt Date: 20111101
  Transmission Date: 20120928
  Serious: No
  Sender: FDA-Public Use
  Company Number: US-ASTRAZENECA-2011SE66520

PATIENT
  Age: 55 Year
  Sex: Female

DRUGS (3)
  1. SEROQUEL [Suspect]
     Route: 048
  2. PREDNISONE [Suspect]
  3. SEROQUEL [Suspect]
     Route: 048

REACTIONS (3)
  - SWELLING [None]
  - NERVOUSNESS [None]
  - ILL-DEFINED DISORDER [None]
